FAERS Safety Report 18289922 (Version 1)
Quarter: 2020Q3

REPORT INFORMATION
  Report Type: Spontaneous
  Country: US (occurrence: US)
  Receive Date: 20200921
  Receipt Date: 20200921
  Transmission Date: 20201103
  Serious: No
  Sender: FDA-Public Use
  Company Number: US-ELITE LABORATORIES INC.-2020ELT00068

PATIENT
  Sex: Male
  Weight: 84.81 kg

DRUGS (5)
  1. DEXTROAMPHET SACCHARAT, AMPHET ASPARTATE, DEXTROAMPHET SULFATE AND AMPHET SULFAT [Suspect]
     Active Substance: AMPHETAMINE ASPARTATE\AMPHETAMINE SULFATE\DEXTROAMPHETAMINE SACCHARATE\DEXTROAMPHETAMINE SULFATE
     Indication: ATTENTION DEFICIT HYPERACTIVITY DISORDER
     Dosage: 30 MG, 2X/DAY
     Route: 048
     Dates: start: 202004, end: 2020
  2. PROTEIN SUPPLEMENTS [Concomitant]
     Active Substance: PROTEIN
  3. MULTIVITAMIN [Concomitant]
     Active Substance: VITAMINS
  4. DEXTROAMPHET SACCHARAT, AMPHET ASPARTATE, DEXTROAMPHET SULFATE AND AMPHET SULFAT [Suspect]
     Active Substance: AMPHETAMINE ASPARTATE\AMPHETAMINE SULFATE\DEXTROAMPHETAMINE SACCHARATE\DEXTROAMPHETAMINE SULFATE
     Dosage: 30 MG, 2X/DAY
     Route: 048
     Dates: start: 2020, end: 2020
  5. FISH OIL [Concomitant]
     Active Substance: FISH OIL

REACTIONS (3)
  - Product substitution issue [Not Recovered/Not Resolved]
  - Anxiety [Recovered/Resolved]
  - Drug ineffective [Not Recovered/Not Resolved]

NARRATIVE: CASE EVENT DATE: 2020
